FAERS Safety Report 10906961 (Version 1)
Quarter: 2015Q1

REPORT INFORMATION
  Report Type: Spontaneous
  Country: GB (occurrence: GB)
  Receive Date: 20150312
  Receipt Date: 20150312
  Transmission Date: 20150721
  Serious: Yes (Other)
  Sender: FDA-Public Use
  Company Number: GB-TEVA-545700ACC

PATIENT
  Age: 37 Year
  Sex: Male
  Weight: 71 kg

DRUGS (17)
  1. FLUCLOXACILLIN [Concomitant]
     Active Substance: FLUCLOXACILLIN
     Dosage: 4 DOSAGE FORMS DAILY;
     Dates: start: 20141126, end: 20141203
  2. PROMETHAZINE HYDROCHLORIDE. [Concomitant]
     Active Substance: PROMETHAZINE HYDROCHLORIDE
     Dosage: 1-2 AT NIGHT
     Dates: start: 20141022
  3. SERTRALINE [Concomitant]
     Active Substance: SERTRALINE HYDROCHLORIDE
     Dosage: 4 DOSAGE FORMS DAILY;
     Dates: start: 20140606
  4. TRIMETHOPRIM. [Concomitant]
     Active Substance: TRIMETHOPRIM
     Dosage: 2 DOSAGE FORMS DAILY;
     Dates: start: 20141203, end: 20150113
  5. HIBISCRUB [Concomitant]
     Dosage: USE AS DIRECTED
     Dates: start: 20141203, end: 20150222
  6. AMITRIPTYLINE HYDROCHLORIDE. [Suspect]
     Active Substance: AMITRIPTYLINE HYDROCHLORIDE
     Dates: start: 19790712
  7. DIAZEPAM. [Concomitant]
     Active Substance: DIAZEPAM
     Dates: start: 20141126, end: 20150224
  8. MIRTAZAPINE. [Concomitant]
     Active Substance: MIRTAZAPINE
     Dosage: 1 DOSAGE FORMS DAILY;
     Dates: start: 20150125
  9. OMEPRAZOLE. [Concomitant]
     Active Substance: OMEPRAZOLE
     Dosage: 1 DOSAGE FORMS DAILY;
     Dates: start: 20140606
  10. NAPROXEN. [Concomitant]
     Active Substance: NAPROXEN
     Dosage: 2 DOSAGE FORMS DAILY; DAILY WITH FOOD; DAILY DOSE: 2 DOSAGE FORMS
     Dates: start: 20150131, end: 20150214
  11. PEPPERMINT OIL [Concomitant]
     Active Substance: PEPPERMINT OIL
     Dosage: 3 DOSAGE FORMS DAILY;
     Dates: start: 20141230
  12. SALIVIX [Concomitant]
     Dosage: USE AS DIRECTED
     Dates: start: 20141127
  13. PROPRANOLOL [Concomitant]
     Active Substance: PROPRANOLOL\PROPRANOLOL HYDROCHLORIDE
     Dosage: 2 DOSAGE FORMS DAILY;
     Dates: start: 20140606
  14. FUSIDIC ACID [Concomitant]
     Active Substance: FUSIDIC ACID
     Dates: start: 20150114, end: 20150121
  15. LYMECYCLINE [Concomitant]
     Active Substance: LYMECYCLINE
     Dosage: 1 DOSAGE FORMS DAILY;
     Dates: start: 20141209
  16. ACIDEX [Concomitant]
     Dosage: 40 ML DAILY;
     Dates: start: 20141223, end: 20150104
  17. FLUTICASONE PROPIONATE. [Concomitant]
     Active Substance: FLUTICASONE PROPIONATE
     Dosage: 4 DOSAGE FORMS DAILY;
     Dates: start: 20131220, end: 20150125

REACTIONS (1)
  - Drug reaction with eosinophilia and systemic symptoms [Unknown]

NARRATIVE: CASE EVENT DATE: 20150224
